FAERS Safety Report 23171832 (Version 1)
Quarter: 2023Q4

REPORT INFORMATION
  Report Type: Spontaneous
  Country: US (occurrence: None)
  Receive Date: 20231110
  Receipt Date: 20231110
  Transmission Date: 20240110
  Serious: No
  Sender: FDA-Public Use
  Company Number: None

PATIENT
  Age: 76 Year
  Sex: Female
  Weight: 88.45 kg

DRUGS (1)
  1. SIMPONI ARIA [Suspect]
     Active Substance: GOLIMUMAB
     Indication: Rheumatoid arthritis
     Dosage: FREQUENCY : AS DIRECTED;?INFUSE 177 MG INTRAVENOUSLY ON WEEK O AND WEEK 4 AS DIRECTED?
     Route: 042
     Dates: start: 202106

REACTIONS (2)
  - Nasopharyngitis [None]
  - Bronchitis [None]
